FAERS Safety Report 8853160 (Version 2)
Quarter: 2012Q4

REPORT INFORMATION
  Report Type: 
  Country: US (occurrence: US)
  Receive Date: 20121022
  Receipt Date: 20121102
  Transmission Date: 20130627
  Serious: Yes (Death)
  Sender: FDA-Public Use
  Company Number: US-FRI-1000039378

PATIENT
  Age: 53 None
  Sex: Male
  Weight: 86 kg

DRUGS (12)
  1. VIIBRYD [Suspect]
     Indication: DEPRESSION
     Dosage: 10 mg
     Dates: start: 20120827, end: 20120902
  2. VIIBRYD [Suspect]
     Dosage: 20 mg
     Dates: start: 20120903, end: 20120909
  3. VIIBRYD [Suspect]
     Indication: DEPRESSION
     Dosage: 40 mg
     Dates: start: 20120910, end: 20120920
  4. ZOLOFT [Suspect]
     Dates: start: 20120920
  5. PROMETHAZINE [Concomitant]
     Dosage: 25 mg tablet every 6 hours prn
     Route: 048
  6. NEXIUM [Concomitant]
     Dosage: 40 mg daily
     Route: 048
  7. HYDROCODONE-IBUPROFEN [Concomitant]
     Dosage: 7.5 mg-200 mg every 4 hours
     Route: 048
  8. SIMVASTATIN [Concomitant]
     Dosage: 20 mg QHS
     Route: 048
  9. MELOXICAM [Concomitant]
     Dosage: 15 mg
     Route: 048
  10. ALPRAZOLAM [Concomitant]
     Dosage: 0.5 mg TID
     Route: 048
  11. OMEPRAZOLE [Concomitant]
     Dosage: 40 mg
     Route: 048
  12. MAXALT [Concomitant]
     Dosage: 10 mg
     Route: 048

REACTIONS (3)
  - Completed suicide [Fatal]
  - Overdose [Fatal]
  - Mania [Fatal]
